FAERS Safety Report 6645706-9 (Version None)
Quarter: 2010Q1

REPORT INFORMATION
  Report Type: 
  Country: None (occurrence: None)
  Receive Date: 20100323
  Receipt Date: 20100319
  Transmission Date: 20100710
  Serious: Yes (Hospitalization)
  Sender: FDA-Public Use
  Company Number: FR-ROXANE LABORATORIES, INC.-2010-RO-00302RO

PATIENT
  Sex: Female

DRUGS (1)
  1. METHADONE HCL [Suspect]

REACTIONS (3)
  - ACCIDENTAL DRUG INTAKE BY CHILD [None]
  - LOSS OF CONSCIOUSNESS [None]
  - THERAPEUTIC AGENT TOXICITY [None]
